FAERS Safety Report 22115394 (Version 1)
Quarter: 2023Q1

REPORT INFORMATION
  Report Type: Spontaneous
  Country: US (occurrence: None)
  Receive Date: 20230318
  Receipt Date: 20230318
  Transmission Date: 20230417
  Serious: No
  Sender: FDA-Public Use
  Company Number: None

PATIENT
  Sex: Male
  Weight: 74.39 kg

DRUGS (11)
  1. ABIRATERONE ACETATE [Suspect]
     Active Substance: ABIRATERONE ACETATE
     Indication: Prostate cancer
     Dosage: 1000 MG DAILY ORAL?
     Route: 048
  2. PREDNISONE [Suspect]
     Active Substance: PREDNISONE
     Indication: Prostate cancer
     Dosage: 5 MG Q 12HOURS ORAL
     Route: 048
  3. AMITRIPTYLINE [Concomitant]
  4. BICALUTAMIDE [Concomitant]
  5. DICLOFENAC [Concomitant]
  6. ELIGARD [Concomitant]
  7. MIRAPEX [Concomitant]
  8. PREDNISONE [Concomitant]
  9. PREGABALIN [Concomitant]
  10. TAMSULOSIN [Concomitant]
  11. TRAMADOL [Concomitant]

REACTIONS (1)
  - Prostatic specific antigen increased [None]
